FAERS Safety Report 8183426-2 (Version None)
Quarter: 2012Q1

REPORT INFORMATION
  Report Type: 
  Country: None (occurrence: None)
  Receive Date: 20120305
  Receipt Date: 20120222
  Transmission Date: 20120608
  Serious: Yes (Hospitalization)
  Sender: FDA-Public Use
  Company Number: CA-COVIDIEN/TYCO HEALTHCARE/MALLINCKRODT-T201200682

PATIENT

DRUGS (2)
  1. MORPHINE [Suspect]
     Dosage: 32 MG/DAY
     Route: 037
  2. CLONIDINE [Suspect]
     Dosage: 24 MCG/DAY
     Route: 037

REACTIONS (1)
  - HYPERAESTHESIA [None]
